FAERS Safety Report 5572742-6 (Version None)
Quarter: 2007Q4

REPORT INFORMATION
  Report Type: 
  Country: None (occurrence: None)
  Receive Date: 20071130
  Receipt Date: 20070124
  Transmission Date: 20080405
  Serious: Yes (Other)
  Sender: FDA-Public Use
  Company Number: WAES 0606USA00340

PATIENT
  Age: 58 Year
  Sex: Female

DRUGS (7)
  1. FOSAMAX [Suspect]
     Indication: OSTEOPENIA
     Dosage: 35 MG WKY PO
     Route: 048
     Dates: start: 19940101, end: 20000101
  2. FOSAMAX [Suspect]
     Indication: OSTEOPENIA
     Dosage: 70 MG WKY PO
     Route: 048
     Dates: start: 20010101, end: 20060301
  3. FOSAMAX [Suspect]
     Indication: OSTEOPENIA
     Dosage: 10 MG DAILY PO
     Route: 048
  4. FOSAMAX [Suspect]
     Indication: OSTEOPENIA
     Dosage: 5 MG DAILY PO
     Route: 048
  5. FOSAMAX PLUS D [Concomitant]
  6. LIPITOR [Concomitant]
  7. CALCIUM UNSPECIFIED VITAMINS [Concomitant]

REACTIONS (10)
  - CATARACT [None]
  - DIZZINESS [None]
  - NAUSEA [None]
  - OSTEOMYELITIS [None]
  - OSTEONECROSIS [None]
  - PAIN IN EXTREMITY [None]
  - RETCHING [None]
  - SINUSITIS [None]
  - TRIGEMINAL NEURALGIA [None]
  - VENOUS ANGIOMA OF BRAIN [None]
